FAERS Safety Report 21864377 (Version 6)
Quarter: 2023Q4

REPORT INFORMATION
  Report Type: Report from Study
  Country: US (occurrence: US)
  Receive Date: 20230116
  Receipt Date: 20231031
  Transmission Date: 20240110
  Serious: Yes (Hospitalization, Other)
  Sender: FDA-Public Use
  Company Number: US-ARGENX-2023-ARGX-US000137

PATIENT
  Age: 51 Year
  Sex: Female

DRUGS (1)
  1. VYVGART [Suspect]
     Active Substance: EFGARTIGIMOD ALFA-FCAB
     Indication: Product used for unknown indication
     Dosage: UNK
     Route: 042

REACTIONS (11)
  - Myasthenia gravis crisis [Unknown]
  - Oedema [Unknown]
  - Cardiac failure congestive [Unknown]
  - Seizure [Unknown]
  - Gastroenteritis viral [Unknown]
  - Inappropriate schedule of product administration [Unknown]
  - Heart rate decreased [Unknown]
  - Adnexa uteri pain [Unknown]
  - Dizziness [Unknown]
  - Blood glucose decreased [Unknown]
  - Fatigue [Unknown]

NARRATIVE: CASE EVENT DATE: 20230104
